FAERS Safety Report 19157518 (Version 2)
Quarter: 2021Q2

REPORT INFORMATION
  Report Type: Spontaneous
  Country: GB (occurrence: GB)
  Receive Date: 20210420
  Receipt Date: 20210601
  Transmission Date: 20210717
  Serious: Yes (Hospitalization, Other)
  Sender: FDA-Public Use
  Company Number: GB-MYLANLABS-2021M1022543

PATIENT
  Age: 66 Year
  Sex: Female
  Weight: 90.4 kg

DRUGS (17)
  1. ZOMORPH [Suspect]
     Active Substance: MORPHINE SULFATE
     Indication: PAIN
     Dosage: 40 MILLIGRAM, BID
     Route: 048
  2. PACLITAXEL. [Suspect]
     Active Substance: PACLITAXEL
     Indication: ENDOMETRIAL CANCER
     Dosage: 336 MILLIGRAM, CYCLE/CYCLE 1 OF 3?WEEKLY REGIMEN
     Route: 065
     Dates: start: 20210301
  3. METOCLOPRAMIDE. [Suspect]
     Active Substance: METOCLOPRAMIDE
     Indication: PROPHYLAXIS OF NAUSEA AND VOMITING
     Dosage: 10 MILLIGRAM, PRN (UPTO 3 TIMES A DAY, AS REQUIRED)
     Route: 048
     Dates: start: 20210301
  4. GLUCOSE [Suspect]
     Active Substance: DEXTROSE
     Indication: MEDICATION DILUTION
     Dosage: 550 MILLILITER
     Route: 065
     Dates: start: 20210301
  5. PARACETAMOL [Suspect]
     Active Substance: ACETAMINOPHEN
     Indication: PAIN
     Dosage: 1 GRAM, PRN (UPTO FOUR TIMES, AS REQUIRED)
     Route: 048
  6. APIXABAN [Concomitant]
     Active Substance: APIXABAN
     Indication: ANTICOAGULANT THERAPY
     Dosage: 5 MILLIGRAM, BID
     Route: 048
  7. CYANOCOBALAMIN. [Concomitant]
     Active Substance: CYANOCOBALAMIN
     Indication: VITAMIN B12 DEFICIENCY
     Dosage: 1 DOSAGE FORM, QD
     Route: 048
  8. COVID?19 VACCINE NOS. [Concomitant]
     Active Substance: COVID-19 VACCINE NOS
     Dosage: UNK
  9. FOLIC ACID. [Concomitant]
     Active Substance: FOLIC ACID
     Indication: FOLATE DEFICIENCY
     Dosage: 5 MILLIGRAM, QD
     Route: 048
  10. CARBOPLATIN. [Suspect]
     Active Substance: CARBOPLATIN
     Indication: ENDOMETRIAL CANCER
     Dosage: 500 MILLIGRAM, CYCLE/CYCLE 1 OF 3?WEEKLY REGIMEN
     Route: 065
     Dates: start: 20210301
  11. MORPHINE SULFATE. [Suspect]
     Active Substance: MORPHINE SULFATE
     Indication: PAIN
     Dosage: 5 MILLIGRAM, PRN/10MG/5 ML
     Route: 048
  12. SODIUM CHLORIDE 0.9% [Suspect]
     Active Substance: SODIUM CHLORIDE
     Indication: MEDICATION DILUTION
     Dosage: 306 MILLILITER
     Route: 065
     Dates: start: 20210301
  13. DEXAMETHASONE. [Suspect]
     Active Substance: DEXAMETHASONE
     Indication: PROPHYLAXIS OF NAUSEA AND VOMITING
     Dosage: 4 MILLIGRAM, BID
     Route: 048
     Dates: start: 20210302, end: 20210303
  14. ONDANSETRON [Suspect]
     Active Substance: ONDANSETRON
     Indication: PROPHYLAXIS OF NAUSEA AND VOMITING
     Dosage: 8 MILLIGRAM, BID
     Route: 048
     Dates: start: 20210302, end: 20210303
  15. DIAZEPAM. [Concomitant]
     Active Substance: DIAZEPAM
     Indication: ANXIETY
     Dosage: 2 MILLIGRAM, PRN (UPTO THREE TIMES A DAY, AS REQUIRED)
     Route: 048
  16. GLUCOSE [Suspect]
     Active Substance: DEXTROSE
     Dosage: 500 MILLILITER
     Route: 042
     Dates: start: 20210301
  17. PREGABALIN. [Concomitant]
     Active Substance: PREGABALIN
     Indication: NEURALGIA
     Dosage: 50 MILLIGRAM, QD
     Route: 048

REACTIONS (3)
  - Acute kidney injury [Recovering/Resolving]
  - Myelosuppression [Recovering/Resolving]
  - Neutropenic sepsis [Unknown]

NARRATIVE: CASE EVENT DATE: 202103
